FAERS Safety Report 15499256 (Version 1)
Quarter: 2018Q4

REPORT INFORMATION
  Report Type: Spontaneous
  Country: JP (occurrence: JP)
  Receive Date: 20181015
  Receipt Date: 20181015
  Transmission Date: 20190205
  Serious: Yes (Hospitalization, Other)
  Sender: FDA-Public Use
  Company Number: JP-MYLANLABS-2018M1074878

PATIENT
  Age: 75 Year
  Sex: Female

DRUGS (1)
  1. MAGNESIUM OXIDE. [Suspect]
     Active Substance: MAGNESIUM OXIDE
     Indication: PRODUCT USED FOR UNKNOWN INDICATION
     Route: 065

REACTIONS (14)
  - Atrioventricular block first degree [Recovering/Resolving]
  - Heart rate decreased [Recovering/Resolving]
  - Bundle branch block right [Recovering/Resolving]
  - Depressed level of consciousness [Recovering/Resolving]
  - Electrocardiogram low voltage [Recovering/Resolving]
  - Areflexia [Recovering/Resolving]
  - Blood pressure systolic decreased [Recovering/Resolving]
  - Electrocardiogram T wave amplitude increased [Recovering/Resolving]
  - Hypokinesia [Recovering/Resolving]
  - Hypermagnesaemia [Recovering/Resolving]
  - Toxicity to various agents [Recovering/Resolving]
  - Cardiothoracic ratio increased [Recovering/Resolving]
  - Respiratory depression [Recovering/Resolving]
  - Hypotonia [Recovering/Resolving]
